FAERS Safety Report 11105194 (Version 1)
Quarter: 2015Q2

REPORT INFORMATION
  Report Type: Report from Study
  Country: KR (occurrence: KR)
  Receive Date: 20150511
  Receipt Date: 20150511
  Transmission Date: 20150821
  Serious: Yes (Hospitalization)
  Sender: FDA-Public Use
  Company Number: KR-AMGEN-KORCT2015044840

PATIENT
  Age: 47 Year
  Sex: Female

DRUGS (24)
  1. DEXRAZOXANE. [Concomitant]
     Active Substance: DEXRAZOXANE
     Dosage: 730 MG, UNK
     Route: 042
     Dates: start: 20150324, end: 20150324
  2. CYCLOPHOSPHAMIDE. [Concomitant]
     Active Substance: CYCLOPHOSPHAMIDE
     Dosage: 730 MG, UNK
     Route: 042
     Dates: start: 20150324, end: 20150324
  3. METOCLOPRAMIDE HCL [Concomitant]
     Active Substance: METOCLOPRAMIDE HYDROCHLORIDE
     Dosage: 30 MG, UNK
     Route: 048
     Dates: start: 20150324, end: 20150326
  4. DARBEPOETIN ALFA [Concomitant]
     Active Substance: DARBEPOETIN ALFA
     Dosage: 378 MUG, UNK
     Route: 042
     Dates: start: 20150402, end: 20150402
  5. TRESTAN                            /00056201/ [Concomitant]
     Dosage: 2 DF, UNK
     Route: 065
     Dates: start: 20150331, end: 20150401
  6. VITAMEDIN                          /00274301/ [Concomitant]
     Dosage: 50 MG, UNK
     Route: 048
     Dates: start: 20150331, end: 20150401
  7. DOCETAXEL. [Concomitant]
     Active Substance: DOCETAXEL
     Dosage: 109 MG, UNK
     Route: 042
     Dates: start: 20150324, end: 20150324
  8. DOXORUBICIN [Concomitant]
     Active Substance: DOXORUBICIN
     Dosage: 73 MG, UNK
     Route: 042
     Dates: start: 20150414, end: 20150414
  9. FILGRASTIM [Concomitant]
     Active Substance: FILGRASTIM
     Dosage: 150 MG, UNK
     Route: 058
     Dates: start: 20150331, end: 20150401
  10. DOCETAXEL. [Concomitant]
     Active Substance: DOCETAXEL
     Dosage: 109 MG, UNK
     Route: 042
     Dates: start: 20150414, end: 20150414
  11. TOBRA                              /00304201/ [Concomitant]
     Dosage: 200 MG, UNK
     Route: 042
     Dates: start: 20150331, end: 20150402
  12. MEGESTROL ACETATE. [Concomitant]
     Active Substance: MEGESTROL ACETATE
     Dosage: 800 MG, UNK
     Route: 048
     Dates: start: 20150331, end: 20150401
  13. APREPITANT. [Concomitant]
     Active Substance: APREPITANT
     Dosage: 125 MG, UNK
     Route: 048
     Dates: start: 20150324, end: 20150324
  14. PEGFILGRASTIM [Suspect]
     Active Substance: PEGFILGRASTIM
     Indication: FEBRILE NEUTROPENIA
     Dosage: 6 MG, 1X/3WEEKS
     Route: 058
     Dates: start: 20150325, end: 20150415
  15. CYCLOPHOSPHAMIDE. [Concomitant]
     Active Substance: CYCLOPHOSPHAMIDE
     Dosage: 730 MG, UNK
     Route: 042
     Dates: start: 20150414, end: 20150414
  16. DEXAMETHASONE. [Concomitant]
     Active Substance: DEXAMETHASONE
     Dosage: 3 MG, UNK
     Route: 048
     Dates: start: 20150325, end: 20150326
  17. RANITIDINE [Concomitant]
     Active Substance: RANITIDINE\RANITIDINE HYDROCHLORIDE
     Dosage: 300 MG, UNK
     Route: 048
     Dates: start: 20150324, end: 20150326
  18. CEFOBACTAM [Concomitant]
     Dosage: 1 G, UNK
     Route: 042
     Dates: start: 20150331, end: 20150402
  19. DOXORUBICIN [Concomitant]
     Active Substance: DOXORUBICIN
     Dosage: 73 MG, UNK
     Route: 042
     Dates: start: 20150324, end: 20150324
  20. APREPITANT. [Concomitant]
     Active Substance: APREPITANT
     Dosage: 80 MG, UNK
     Route: 048
     Dates: start: 20150325, end: 20150326
  21. DIMENHYDRINATE. [Concomitant]
     Active Substance: DIMENHYDRINATE
     Dosage: 150 MG, UNK
     Route: 048
     Dates: start: 20150324, end: 20150326
  22. FERRIC HYDROXIDE [Concomitant]
     Active Substance: FERRIC HYDROXIDE
     Dosage: 100 MG, UNK
     Route: 042
     Dates: start: 20150401, end: 20150401
  23. DEXAMETHASONE. [Concomitant]
     Active Substance: DEXAMETHASONE
     Dosage: 10 MG, UNK
     Route: 042
     Dates: start: 20150324, end: 20150324
  24. PALONOSETRON [Concomitant]
     Active Substance: PALONOSETRON
     Dosage: 0.25 MG, UNK
     Route: 042
     Dates: start: 20150324, end: 20150324

REACTIONS (1)
  - Neutropenia [Recovered/Resolved]

NARRATIVE: CASE EVENT DATE: 20150421
